FAERS Safety Report 14677112 (Version 1)
Quarter: 2018Q1

REPORT INFORMATION
  Report Type: Spontaneous
  Country: US (occurrence: US)
  Receive Date: 20180323
  Receipt Date: 20180323
  Transmission Date: 20180509
  Serious: Yes (Hospitalization)
  Sender: FDA-Public Use
  Company Number: None

PATIENT
  Age: 58 Year
  Sex: Female
  Weight: 89.4 kg

DRUGS (2)
  1. CYCLOPHOSPHAMIDE. [Suspect]
     Active Substance: CYCLOPHOSPHAMIDE
     Dates: end: 20180307
  2. DOXORUBICIN HYDROCHLORIDE. [Suspect]
     Active Substance: DOXORUBICIN HYDROCHLORIDE
     Dates: end: 20180307

REACTIONS (10)
  - Bacterial infection [None]
  - Fatigue [None]
  - Chills [None]
  - Blood culture positive [None]
  - Febrile neutropenia [None]
  - Catheter site erythema [None]
  - Wound [None]
  - Staphylococcus test positive [None]
  - Catheter site oedema [None]
  - Catheter site discharge [None]

NARRATIVE: CASE EVENT DATE: 20180316
